FAERS Safety Report 7737472-0 (Version None)
Quarter: 2011Q3

REPORT INFORMATION
  Report Type: 
  Country: None (occurrence: None)
  Receive Date: 20110908
  Receipt Date: 20110830
  Transmission Date: 20111222
  Serious: Yes (Death, Hospitalization)
  Sender: FDA-Public Use
  Company Number: US-GLAXOSMITHKLINE-A0942855A

PATIENT
  Age: 53 Year
  Sex: Female

DRUGS (8)
  1. BENADRYL [Concomitant]
  2. ZOFRAN [Concomitant]
  3. FENTANYL-100 [Concomitant]
  4. UNSPECIFIED MEDICATION [Concomitant]
  5. INSULIN [Concomitant]
  6. ARIXTRA [Suspect]
     Indication: HEPARIN-INDUCED THROMBOCYTOPENIA
     Route: 058
     Dates: start: 20110701
  7. UNKNOWN [Concomitant]
  8. DIFLUCAN [Concomitant]

REACTIONS (2)
  - DEATH [None]
  - OFF LABEL USE [None]
